FAERS Safety Report 20534073 (Version 2)
Quarter: 2022Q1

REPORT INFORMATION
  Report Type: Report from Study
  Country: SZ (occurrence: None)
  Receive Date: 20220301
  Receipt Date: 20220322
  Transmission Date: 20220423
  Serious: Yes (Hospitalization)
  Sender: FDA-Public Use
  Company Number: SZ-ROCHE-3030366

PATIENT
  Sex: Male
  Weight: 75 kg

DRUGS (5)
  1. ATEZOLIZUMAB [Suspect]
     Active Substance: ATEZOLIZUMAB
     Indication: Pleural mesothelioma malignant
     Route: 065
     Dates: start: 20211222
  2. CARBOPLATIN [Suspect]
     Active Substance: CARBOPLATIN
     Indication: Pleural mesothelioma malignant
     Route: 065
     Dates: start: 20211222
  3. PEMETREXED [Suspect]
     Active Substance: PEMETREXED
     Indication: Pleural mesothelioma malignant
     Route: 065
     Dates: start: 20211222
  4. BEVACIZUMAB [Suspect]
     Active Substance: BEVACIZUMAB
     Indication: Pleural mesothelioma malignant
     Route: 065
     Dates: start: 20211222
  5. DEXAMETHASONE [Concomitant]
     Active Substance: DEXAMETHASONE

REACTIONS (1)
  - Peripheral sensory neuropathy [Recovered/Resolved]

NARRATIVE: CASE EVENT DATE: 20220114
